FAERS Safety Report 10162991 (Version 1)
Quarter: 2014Q2

REPORT INFORMATION
  Report Type: Spontaneous
  Country: US (occurrence: US)
  Receive Date: 20140509
  Receipt Date: 20140509
  Transmission Date: 20141212
  Serious: No
  Sender: FDA-Public Use
  Company Number: US-PFIZER INC-2014125258

PATIENT
  Sex: 0

DRUGS (2)
  1. ZOLOFT [Suspect]
     Indication: MAJOR DEPRESSION
     Dosage: UNK
  2. BRINTELLIX [Suspect]
     Indication: MAJOR DEPRESSION
     Dosage: 10 MG, 1X/DAY
     Route: 048

REACTIONS (1)
  - Abnormal dreams [Recovered/Resolved]
